FAERS Safety Report 10038023 (Version 1)
Quarter: 2014Q1

REPORT INFORMATION
  Report Type: Spontaneous
  Country: US (occurrence: None)
  Receive Date: 20140306
  Receipt Date: 20140306
  Transmission Date: 20141002
  Serious: Yes (Hospitalization)
  Sender: FDA-Public Use
  Company Number: 163-21880-13082713

PATIENT
  Age: 55 Year
  Sex: Female
  Weight: 54.4 kg

DRUGS (14)
  1. REVLIMID (LENALIDOMIDE) (10 MILLIGRAM, CAPSULES) [Suspect]
     Indication: PLASMA CELL MYELOMA
     Route: 048
     Dates: start: 201307
  2. POTASSIUM (POTASSIUM) [Concomitant]
  3. ANTIVERT (MECLOZINE HYDROCHLORIDE) [Concomitant]
  4. HYDROCORTISONE (HYDROCORTISONE) [Concomitant]
  5. FOLIC ACID (FOLIC ACID) [Concomitant]
  6. DIFLUCAN (FLUCONAZOLE) [Concomitant]
  7. ENALAPRIL MALEATE (ENALAPRIL MALEATE) [Concomitant]
  8. CARVEDILOL (CARVEDILOL) [Concomitant]
  9. BUMEX (BUMETANIDE) [Concomitant]
  10. ASPIRIN (ACETYLSALICYLIC ACID) [Concomitant]
  11. OXYCODONE HCL (OXYCODONE HYDROCHLORIDE) [Concomitant]
  12. VANCOMYCIN HCL (VANCOMYCIN HYDROCHLORIDE) [Concomitant]
  13. FLAGYL (METRONIDAZOLE) [Concomitant]
  14. ZYVOX (LINEZOLID) [Concomitant]

REACTIONS (5)
  - Diverticulitis [None]
  - Abscess intestinal [None]
  - Full blood count decreased [None]
  - Flushing [None]
  - Fatigue [None]
